FAERS Safety Report 5176597-3 (Version None)
Quarter: 2006Q4

REPORT INFORMATION
  Report Type: 
  Country: None (occurrence: None)
  Receive Date: 20061215
  Receipt Date: 20060328
  Transmission Date: 20070319
  Serious: Yes (Death)
  Sender: FDA-Public Use
  Company Number: DE-ABBOTT-06P-062-0329724-00

PATIENT
  Sex: Male
  Weight: 54 kg

DRUGS (2)
  1. ZEMPLAR [Suspect]
     Indication: HYPERPARATHYROIDISM SECONDARY
     Route: 042
     Dates: start: 20060216, end: 20060328
  2. DIGITOXIN TAB [Suspect]
     Indication: DRUG USE FOR UNKNOWN INDICATION

REACTIONS (7)
  - ABDOMINAL PAIN [None]
  - ANOREXIA [None]
  - GENERAL PHYSICAL HEALTH DETERIORATION [None]
  - OESOPHAGEAL CARCINOMA [None]
  - PNEUMONIA [None]
  - RIGHT VENTRICULAR FAILURE [None]
  - WEIGHT DECREASED [None]
